FAERS Safety Report 8547605-4 (Version None)
Quarter: 2012Q3

REPORT INFORMATION
  Report Type: 
  Country: None (occurrence: None)
  Receive Date: 20120727
  Receipt Date: 20120315
  Transmission Date: 20120928
  Serious: Yes (Other)
  Sender: FDA-Public Use
  Company Number: US-ASTRAZENECA-2012SE18248

PATIENT
  Age: 61 Year
  Sex: Female
  Weight: 105.6 kg

DRUGS (5)
  1. SEROQUEL [Suspect]
     Indication: DEPRESSION
     Dosage: 1/3 OF 400MG AT NIGHT
     Route: 048
     Dates: start: 20020101
  2. SEROQUEL [Suspect]
     Indication: BIPOLAR DISORDER
     Dosage: 1/3 OF 400MG AT NIGHT
     Route: 048
     Dates: start: 20020101
  3. CHLORTHALIDONE [Concomitant]
     Indication: BLOOD PRESSURE
     Route: 048
  4. SEROQUEL [Suspect]
     Indication: SLEEP DISORDER
     Dosage: 1/3 OF 400MG AT NIGHT
     Route: 048
     Dates: start: 20020101
  5. FLUOXETINE HCL [Concomitant]
     Indication: AFFECTIVE DISORDER
     Route: 048

REACTIONS (10)
  - INSOMNIA [None]
  - WEIGHT INCREASED [None]
  - AMNESIA [None]
  - HYPERTENSION [None]
  - INTENTIONAL DRUG MISUSE [None]
  - HUNGER [None]
  - CHEST PAIN [None]
  - BLOOD GLUCOSE INCREASED [None]
  - POLLAKIURIA [None]
  - THIRST [None]
